FAERS Safety Report 22646812 (Version 1)
Quarter: 2023Q2

REPORT INFORMATION
  Report Type: Spontaneous
  Country: GB (occurrence: GB)
  Receive Date: 20230627
  Receipt Date: 20230627
  Transmission Date: 20230722
  Serious: Yes (Other)
  Sender: FDA-Public Use
  Company Number: GB-MHRA-MED-202306191354197420-WCFJY

PATIENT
  Age: 50 Year
  Sex: Male
  Weight: 80 kg

DRUGS (3)
  1. BUPRENORPHINE [Suspect]
     Active Substance: BUPRENORPHINE
     Indication: Back pain
     Dosage: 30 MCG
     Route: 065
  2. IRBESARTAN [Concomitant]
     Active Substance: IRBESARTAN
     Indication: Back pain
     Dosage: UNK
     Route: 065
     Dates: start: 20050615
  3. AMITRIPTYLINE [Concomitant]
     Active Substance: AMITRIPTYLINE
     Indication: Back pain
     Dosage: UNK
     Route: 065
     Dates: start: 20050615

REACTIONS (7)
  - Palpitations [Not Recovered/Not Resolved]
  - Cardiac murmur [Not Recovered/Not Resolved]
  - Arrhythmia [Not Recovered/Not Resolved]
  - Chest pain [Unknown]
  - Neck pain [Unknown]
  - Oropharyngeal pain [Unknown]
  - Dependence [Unknown]

NARRATIVE: CASE EVENT DATE: 20150101
